FAERS Safety Report 7464689-5 (Version None)
Quarter: 2011Q2

REPORT INFORMATION
  Report Type: 
  Country: None (occurrence: None)
  Receive Date: 20110509
  Receipt Date: 20110408
  Transmission Date: 20111010
  Serious: Yes (Hospitalization, Other)
  Sender: FDA-Public Use
  Company Number: US-BAYER-201037277NA

PATIENT
  Age: 44 Year
  Sex: Female
  Weight: 87.075 kg

DRUGS (5)
  1. XENICAL [Concomitant]
     Dosage: 120 MG, UNK
  2. ALLEGRA [Concomitant]
     Dosage: 180 MG, QD
  3. FLONASE [Concomitant]
     Dosage: UNK UNK, QD
     Route: 045
  4. IBUPROFEN [Concomitant]
  5. YASMIN [Suspect]
     Indication: PREMENSTRUAL SYNDROME
     Dosage: UNK
     Route: 048
     Dates: start: 20030801, end: 20030901

REACTIONS (6)
  - EMOTIONAL DISTRESS [None]
  - PULMONARY EMBOLISM [None]
  - OEDEMA [None]
  - PAIN [None]
  - DEEP VEIN THROMBOSIS [None]
  - UNEVALUABLE EVENT [None]
